FAERS Safety Report 20740486 (Version 1)
Quarter: 2022Q2

REPORT INFORMATION
  Report Type: Spontaneous
  Country: US (occurrence: None)
  Receive Date: 20220422
  Receipt Date: 20220422
  Transmission Date: 20220720
  Serious: Yes (Hospitalization, Other)
  Sender: FDA-Public Use
  Company Number: 2022A154072

PATIENT
  Age: 81 Year
  Sex: Female
  Weight: 147 kg

DRUGS (27)
  1. CRESTOR [Suspect]
     Active Substance: ROSUVASTATIN CALCIUM
     Indication: Product used for unknown indication
     Route: 048
  2. METOPROLOL SUCCINATE [Suspect]
     Active Substance: METOPROLOL SUCCINATE
     Route: 065
  3. MODERNA COVID-19 VACCINE [Suspect]
     Active Substance: ELASOMERAN
     Indication: Product used for unknown indication
     Route: 065
     Dates: start: 20210317
  4. JAKAFI [Suspect]
     Active Substance: RUXOLITINIB
     Indication: Myelofibrosis
     Route: 048
     Dates: start: 20190821
  5. JAKAFI [Suspect]
     Active Substance: RUXOLITINIB
     Indication: Myelofibrosis
     Route: 065
     Dates: start: 20190904
  6. JAKAFI [Suspect]
     Active Substance: RUXOLITINIB
     Indication: Myelofibrosis
     Route: 048
  7. JAKAFI [Suspect]
     Active Substance: RUXOLITINIB
     Indication: Myelofibrosis
     Route: 048
     Dates: start: 20190821
  8. JAKAFI [Suspect]
     Active Substance: RUXOLITINIB
     Indication: Myelofibrosis
     Route: 048
     Dates: start: 20190821
  9. JAKAFI [Suspect]
     Active Substance: RUXOLITINIB
     Indication: Myelofibrosis
     Route: 048
     Dates: start: 20190821, end: 20200324
  10. JAKAFI [Suspect]
     Active Substance: RUXOLITINIB
     Indication: Myelofibrosis
     Route: 048
     Dates: start: 20200401
  11. JAKAFI [Suspect]
     Active Substance: RUXOLITINIB
     Indication: Myelofibrosis
     Route: 048
     Dates: start: 20200422
  12. JAKAFI [Suspect]
     Active Substance: RUXOLITINIB
     Indication: Myelofibrosis
     Route: 048
     Dates: start: 20200422
  13. JAKAFI [Suspect]
     Active Substance: RUXOLITINIB
     Indication: Myelofibrosis
     Route: 048
     Dates: start: 20190821
  14. JAKAFI [Suspect]
     Active Substance: RUXOLITINIB
     Indication: Myelofibrosis
     Route: 048
     Dates: start: 20200310
  15. JAKAFI [Suspect]
     Active Substance: RUXOLITINIB
     Indication: Myelofibrosis
     Route: 048
     Dates: start: 20200304
  16. JAKAFI [Suspect]
     Active Substance: RUXOLITINIB
     Indication: Myelofibrosis
     Route: 048
  17. JAKAFI [Suspect]
     Active Substance: RUXOLITINIB
     Indication: Myelofibrosis
     Route: 048
     Dates: start: 20190821
  18. TYLENOL ARTHRITIS PAIN [Suspect]
     Active Substance: ACETAMINOPHEN
     Indication: Arthritis
     Route: 065
  19. APIXABAN [Concomitant]
     Active Substance: APIXABAN
  20. IRON [Concomitant]
     Active Substance: IRON
  21. LASIX [Concomitant]
     Active Substance: FUROSEMIDE
  22. LOSARTAN [Concomitant]
     Active Substance: LOSARTAN
  23. VITAMINS [Concomitant]
     Active Substance: VITAMINS
  24. MINERALS\VITAMINS [Concomitant]
     Active Substance: MINERALS\VITAMINS
  25. SYNTHROID [Concomitant]
     Active Substance: LEVOTHYROXINE SODIUM
  26. TIKOSYN [Concomitant]
     Active Substance: DOFETILIDE
  27. SPIRONOLACTONE [Concomitant]
     Active Substance: SPIRONOLACTONE

REACTIONS (38)
  - Pneumonia [Recovered/Resolved]
  - Foot fracture [Unknown]
  - Sepsis [Recovered/Resolved]
  - Myelofibrosis [Unknown]
  - Joint injury [Unknown]
  - Arrhythmia [Unknown]
  - Malaise [Unknown]
  - Neuropathy peripheral [Unknown]
  - Fall [Unknown]
  - Concussion [Not Recovered/Not Resolved]
  - Sinusitis [Unknown]
  - Confusional state [Unknown]
  - Pain [Unknown]
  - Ear discomfort [Unknown]
  - Rash [Not Recovered/Not Resolved]
  - Stomatitis [Not Recovered/Not Resolved]
  - Toothache [Unknown]
  - Back pain [Unknown]
  - Flatulence [Recovering/Resolving]
  - Constipation [Not Recovered/Not Resolved]
  - Asthenia [Unknown]
  - Nausea [Unknown]
  - Blood cholesterol increased [Unknown]
  - Nasal dryness [Unknown]
  - Hypersensitivity [Unknown]
  - Faeces discoloured [Recovering/Resolving]
  - Memory impairment [Unknown]
  - Lip swelling [Unknown]
  - Pruritus [Unknown]
  - Paraesthesia [Unknown]
  - Heart rate increased [Unknown]
  - Arthritis [Unknown]
  - Arthralgia [Recovered/Resolved]
  - Glossodynia [Unknown]
  - Fatigue [Unknown]
  - Abdominal pain upper [Unknown]
  - Product dose omission issue [Unknown]
  - Wrong technique in product usage process [Unknown]
